FAERS Safety Report 21638248 (Version 1)
Quarter: 2022Q4

REPORT INFORMATION
  Report Type: Spontaneous
  Country: US (occurrence: US)
  Receive Date: 20221124
  Receipt Date: 20221124
  Transmission Date: 20230113
  Serious: No
  Sender: FDA-Public Use
  Company Number: US-BRISTOL-MYERS SQUIBB COMPANY-2022-142975

PATIENT
  Age: 61 Year
  Sex: Male

DRUGS (1)
  1. REVLIMID [Suspect]
     Active Substance: LENALIDOMIDE
     Indication: Plasma cell myeloma
     Dosage: FREQ : 25 MG ORAL CAPSULES, QUANTITY 21, EVERY DAY  FOR 21 DAYS IN  28 DAY CYCLE
     Route: 048
     Dates: start: 20221011

REACTIONS (1)
  - Hypoaesthesia [Recovered/Resolved]
